FAERS Safety Report 13090186 (Version 1)
Quarter: 2017Q1

REPORT INFORMATION
  Report Type: Not Available
  Country: FR (occurrence: FR)
  Receive Date: 20170105
  Receipt Date: 20170105
  Transmission Date: 20170428
  Serious: Yes (Other)
  Sender: FDA-Public Use
  Company Number: FR-ANIPHARMA-2017-FR-000002

PATIENT
  Age: 82 Year
  Sex: Female

DRUGS (4)
  1. VILDAGLIPTIN [Suspect]
     Active Substance: VILDAGLIPTIN
  2. ESCITALOPRAM [Suspect]
     Active Substance: ESCITALOPRAM OXALATE
  3. METFORMIN [Concomitant]
     Active Substance: METFORMIN HYDROCHLORIDE
  4. RISPERIDONE (NON-SPECIFIC) [Suspect]
     Active Substance: RISPERIDONE
     Route: 065

REACTIONS (1)
  - Pemphigoid [Unknown]
